FAERS Safety Report 24710664 (Version 1)
Quarter: 2024Q4

REPORT INFORMATION
  Report Type: Spontaneous
  Country: US (occurrence: US)
  Receive Date: 20241209
  Receipt Date: 20241209
  Transmission Date: 20250115
  Serious: No
  Sender: ELI LILLY AND COMPANY
  Company Number: US-ELI_LILLY_AND_COMPANY-US202411019131

PATIENT
  Age: 61 Year
  Sex: Female

DRUGS (1)
  1. TALTZ [Suspect]
     Active Substance: IXEKIZUMAB
     Indication: Product used for unknown indication
     Dosage: 80 MG, UNKNOWN
     Route: 065

REACTIONS (9)
  - Fatigue [Unknown]
  - Malaise [Unknown]
  - Hyperhidrosis [Unknown]
  - Thyroid disorder [Unknown]
  - Alopecia [Unknown]
  - Body temperature abnormal [Unknown]
  - Feeling hot [Unknown]
  - Eczema [Unknown]
  - Immune system disorder [Unknown]
